FAERS Safety Report 10203284 (Version 2)
Quarter: 2014Q2

REPORT INFORMATION
  Report Type: Spontaneous
  Country: GB (occurrence: GB)
  Receive Date: 20140529
  Receipt Date: 20140619
  Transmission Date: 20141212
  Serious: Yes (Other)
  Sender: FDA-Public Use
  Company Number: GB-AMGEN-GBRSP2014038260

PATIENT
  Age: 79 Year
  Sex: Male

DRUGS (9)
  1. MIMPARA [Suspect]
     Indication: HYPERTHYROIDISM
     Dosage: 30 MG, Q3WK
     Route: 048
  2. LANSOPRAZOLE [Concomitant]
  3. PARACETAMOL [Concomitant]
  4. FUROSEMIDE [Concomitant]
  5. ALLOPURINOL [Concomitant]
  6. DIGOXIN [Concomitant]
  7. BETAHISTINE [Concomitant]
  8. ZOMORPH [Concomitant]
  9. VITAMIN D                          /00107901/ [Concomitant]

REACTIONS (2)
  - Dysphagia [Unknown]
  - Pneumonia [Unknown]
